FAERS Safety Report 8115827-2 (Version None)
Quarter: 2012Q1

REPORT INFORMATION
  Report Type: 
  Country: None (occurrence: None)
  Receive Date: 20120206
  Receipt Date: 20120124
  Transmission Date: 20120608
  Serious: No
  Sender: FDA-Public Use
  Company Number: CA-ELI_LILLY_AND_COMPANY-CA201201004785

PATIENT
  Sex: Female
  Weight: 57.1 kg

DRUGS (4)
  1. VITAMIN D [Concomitant]
     Dosage: 800 IU, QD
     Dates: start: 20010427
  2. FORTEO [Suspect]
  3. CALCIUM [Concomitant]
     Dosage: 500 MG, QD
     Dates: start: 20010427
  4. FOSAMAX [Concomitant]
     Dosage: 70 MG, WEEKLY (1/W)
     Dates: start: 19990506

REACTIONS (2)
  - BEDRIDDEN [None]
  - DECREASED ACTIVITY [None]
